FAERS Safety Report 18306109 (Version 1)
Quarter: 2020Q3

REPORT INFORMATION
  Report Type: Spontaneous
  Country: US (occurrence: US)
  Receive Date: 20200924
  Receipt Date: 20200924
  Transmission Date: 20201103
  Serious: Yes (Hospitalization, Other)
  Sender: FDA-Public Use
  Company Number: US-DRREDDYS-USA/USA/20/0127182

PATIENT
  Age: 59 Year
  Sex: Female

DRUGS (9)
  1. PREDNISONE. [Suspect]
     Active Substance: PREDNISONE
     Indication: T-CELL CHRONIC LYMPHOCYTIC LEUKAEMIA
     Dates: start: 201804
  2. VINCRISTINE [Suspect]
     Active Substance: VINCRISTINE
     Indication: T-CELL CHRONIC LYMPHOCYTIC LEUKAEMIA
     Dates: start: 201804
  3. FLUDARABINE [Concomitant]
     Active Substance: FLUDARABINE PHOSPHATE
     Indication: SALVAGE THERAPY
  4. CYCLOPHOSPHAMIDE. [Concomitant]
     Active Substance: CYCLOPHOSPHAMIDE
     Indication: SALVAGE THERAPY
  5. DOXORUBICIN HYDROCHLORIDE LIPOSOME INJECTION 20 MG/10 ML (2 MG/ML) AND [Suspect]
     Active Substance: DOXORUBICIN HYDROCHLORIDE
     Indication: T-CELL CHRONIC LYMPHOCYTIC LEUKAEMIA
     Route: 065
     Dates: start: 2018
  6. CYCLOPHOSPHAMIDE. [Suspect]
     Active Substance: CYCLOPHOSPHAMIDE
     Indication: T-CELL CHRONIC LYMPHOCYTIC LEUKAEMIA
     Dates: start: 201804
  7. CAMPATH [Concomitant]
     Active Substance: ALEMTUZUMAB
     Indication: T-CELL CHRONIC LYMPHOCYTIC LEUKAEMIA
     Dosage: TEST DOSE
     Route: 058
     Dates: start: 201804
  8. CAMPATH [Concomitant]
     Active Substance: ALEMTUZUMAB
     Route: 058
     Dates: start: 201804
  9. MITOXANTRONE [Concomitant]
     Active Substance: MITOXANTRONE HYDROCHLORIDE
     Indication: SALVAGE THERAPY

REACTIONS (3)
  - Abdominal pain [Unknown]
  - Drug ineffective [Unknown]
  - Small intestinal obstruction [Unknown]
